FAERS Safety Report 7119988-3 (Version None)
Quarter: 2010Q4

REPORT INFORMATION
  Report Type: 
  Country: None (occurrence: None)
  Receive Date: 20101123
  Receipt Date: 20101118
  Transmission Date: 20110411
  Serious: Yes (Other)
  Sender: FDA-Public Use
  Company Number: JP-PFIZER INC-2010140257

PATIENT
  Age: 61 Year
  Sex: Female

DRUGS (8)
  1. LYRICA [Suspect]
     Indication: NEURALGIA
     Dosage: 150 MG/DAY
     Route: 048
     Dates: start: 20101029, end: 20101103
  2. CODEINE PHOSPHATE [Concomitant]
     Indication: SCIATICA
     Route: 048
  3. EBRANTIL [Concomitant]
     Dosage: UNK
     Route: 048
  4. RIVOTRIL [Concomitant]
     Dosage: UNK
     Route: 048
  5. OPALMON [Concomitant]
     Dosage: UNK
     Route: 048
  6. NEUROTROPIN [Concomitant]
     Dosage: UNK
     Route: 048
  7. CYANOCOBALAMIN [Concomitant]
     Dosage: UNK
     Route: 048
  8. UBRETID [Concomitant]
     Dosage: UNK
     Route: 048

REACTIONS (6)
  - DIZZINESS [None]
  - FAECAL INCONTINENCE [None]
  - HAEMATURIA [None]
  - SOMNOLENCE [None]
  - URINARY INCONTINENCE [None]
  - URINARY RETENTION [None]
